FAERS Safety Report 6273407-8 (Version None)
Quarter: 2009Q3

REPORT INFORMATION
  Report Type: 
  Country: None (occurrence: None)
  Receive Date: 20090720
  Receipt Date: 20090706
  Transmission Date: 20100115
  Serious: Yes (Life-Threatening, Other)
  Sender: FDA-Public Use
  Company Number: PHHY2008FR23964

PATIENT
  Age: 6 Year
  Sex: Female
  Weight: 18 kg

DRUGS (8)
  1. ICL670A ICL+ [Suspect]
     Indication: THALASSAEMIA BETA
     Dosage: 250 MG, QD (14 MG/KG/DAY)
     Route: 048
     Dates: start: 20061101, end: 20080601
  2. ICL670A ICL+ [Suspect]
     Indication: IRON OVERLOAD
     Dosage: 375 MG, QD (22 MG/KG/DAY)
     Route: 048
     Dates: start: 20080601, end: 20080907
  3. RED BLOOD CELLS [Concomitant]
  4. ACETAMINOPHEN [Concomitant]
  5. OXACILLIN [Concomitant]
  6. SPECIAFOLDINE [Concomitant]
     Route: 048
  7. ROCEPHIN [Concomitant]
  8. CODEINE [Concomitant]

REACTIONS (9)
  - ABDOMINAL PAIN [None]
  - ANAEMIA [None]
  - DIARRHOEA [None]
  - ENDOSCOPY GASTROINTESTINAL ABNORMAL [None]
  - FATIGUE [None]
  - HAEMORRHAGIC EROSIVE GASTRITIS [None]
  - MELAENA [None]
  - PALLOR [None]
  - VOMITING [None]
